FAERS Safety Report 16312359 (Version 12)
Quarter: 2021Q1

REPORT INFORMATION
  Report Type: Report from Study
  Country: DE (occurrence: DE)
  Receive Date: 20190515
  Receipt Date: 20210127
  Transmission Date: 20210419
  Serious: Yes (Life-Threatening, Hospitalization, Other)
  Sender: FDA-Public Use
  Company Number: DE-BRISTOL-MYERS SQUIBB COMPANY-BMS-2018-120477

PATIENT
  Age: 56 Year
  Sex: Female
  Weight: 104 kg

DRUGS (20)
  1. CEFPODOXIME PROXETIL. [Concomitant]
     Active Substance: CEFPODOXIME PROXETIL
     Indication: PRODUCT USED FOR UNKNOWN INDICATION
     Route: 065
  2. NIVOLUMAB [Suspect]
     Active Substance: NIVOLUMAB
     Dosage: 330 MILLIGRAM, Q2WK
     Route: 042
     Dates: start: 20180824, end: 20190603
  3. NIVOLUMAB [Suspect]
     Active Substance: NIVOLUMAB
     Dosage: 330 MILLIGRAM, Q2WK
     Route: 042
     Dates: start: 20190603
  4. NIVOLUMAB [Suspect]
     Active Substance: NIVOLUMAB
     Dosage: 309 MILLIGRAM, Q2WK
     Route: 042
     Dates: start: 20180824, end: 20191010
  5. TRAMETINIB [Suspect]
     Active Substance: TRAMETINIB
     Indication: MALIGNANT MELANOMA
     Dosage: 2MG PER DAY
     Route: 065
  6. LOPERAMIDE HYDROCHLORIDE. [Concomitant]
     Active Substance: LOPERAMIDE HYDROCHLORIDE
     Indication: PRODUCT USED FOR UNKNOWN INDICATION
     Route: 065
  7. NIVOLUMAB [Suspect]
     Active Substance: NIVOLUMAB
     Dosage: 312 MILLIGRAM, Q2WK
     Route: 042
     Dates: start: 20181112, end: 20181126
  8. NIVOLUMAB [Suspect]
     Active Substance: NIVOLUMAB
     Dosage: 3 MILLIGRAM/KILOGRAM (REINITIATTED)
     Route: 042
     Dates: start: 20190226
  9. METOPROLOL. [Concomitant]
     Active Substance: METOPROLOL
     Indication: HYPERTENSION
     Dosage: UNK
     Route: 065
  10. NIVOLUMAB [Suspect]
     Active Substance: NIVOLUMAB
     Dosage: 309 MILLIGRAM, Q2WK
     Route: 042
     Dates: start: 20181029, end: 20181029
  11. VOLTAREN ACTI [Concomitant]
     Active Substance: DICLOFENAC POTASSIUM
     Indication: HYPERTENSION
     Dosage: UNK
     Route: 065
  12. VALSARTAN. [Concomitant]
     Active Substance: VALSARTAN
     Indication: HYPERTENSION
     Dosage: UNK
     Route: 065
  13. PANTOPRAZOLE SODIUM. [Concomitant]
     Active Substance: PANTOPRAZOLE SODIUM
     Indication: PRODUCT USED FOR UNKNOWN INDICATION
     Route: 065
  14. NIVOLUMAB [Suspect]
     Active Substance: NIVOLUMAB
     Indication: MALIGNANT MELANOMA
     Dosage: 303 MILLIGRAM, Q2WK
     Route: 042
     Dates: start: 20180824, end: 20180824
  15. NIVOLUMAB [Suspect]
     Active Substance: NIVOLUMAB
     Dosage: 306 MILLIGRAM, Q2WK
     Route: 042
     Dates: start: 20181001, end: 20181015
  16. PARACETAMOL [Concomitant]
     Active Substance: ACETAMINOPHEN
     Indication: PRODUCT USED FOR UNKNOWN INDICATION
     Route: 065
  17. NIVOLUMAB [Suspect]
     Active Substance: NIVOLUMAB
     Dosage: 321 MILLIGRAM, Q2WK
     Route: 042
     Dates: start: 20180824
  18. NIVOLUMAB [Suspect]
     Active Substance: NIVOLUMAB
     Dosage: 297 MILLIGRAM, Q2WK
     Route: 042
     Dates: start: 20180824, end: 20191010
  19. TRAMETINIB [Suspect]
     Active Substance: TRAMETINIB
     Dosage: 1 MG PER DAY
     Route: 065
  20. KALINOR [POTASSIUM CHLORIDE] [Concomitant]
     Active Substance: POTASSIUM CHLORIDE
     Indication: HYPERTENSION
     Dosage: UNK
     Route: 065

REACTIONS (22)
  - Hypothyroidism [Not Recovered/Not Resolved]
  - Cholecystitis [Recovered/Resolved]
  - Malignant neoplasm progression [Recovered/Resolved]
  - Headache [Recovering/Resolving]
  - Back pain [Not Recovered/Not Resolved]
  - Autoimmune myositis [Not Recovered/Not Resolved]
  - Visual acuity reduced [Unknown]
  - Pruritus [Recovering/Resolving]
  - Paraesthesia [Recovered/Resolved]
  - Abdominal infection [Recovered/Resolved]
  - Retinopathy [Recovering/Resolving]
  - Dry mouth [Recovering/Resolving]
  - Platelet count increased [Recovered/Resolved]
  - Panic reaction [Recovered/Resolved]
  - Oedema peripheral [Recovering/Resolving]
  - Diarrhoea [Recovered/Resolved]
  - Myopathy [Not Recovered/Not Resolved]
  - Hypokalaemia [Recovered/Resolved]
  - Dyspnoea [Recovered/Resolved]
  - Blood creatine phosphokinase increased [Recovered/Resolved]
  - Myalgia [Recovered/Resolved]
  - Fatigue [Recovering/Resolving]

NARRATIVE: CASE EVENT DATE: 20180824
